FAERS Safety Report 6619053-5 (Version None)
Quarter: 2010Q1

REPORT INFORMATION
  Report Type: 
  Country: None (occurrence: None)
  Receive Date: 20100308
  Receipt Date: 20100222
  Transmission Date: 20100710
  Serious: Yes (Other)
  Sender: FDA-Public Use
  Company Number: JP-PFIZER INC-2010026666

PATIENT

DRUGS (1)
  1. SOLANAX [Suspect]
     Indication: INSOMNIA
     Dosage: 0.4 MG, 1X/DAY
     Route: 048
     Dates: end: 20090801

REACTIONS (2)
  - BLOOD GLUCOSE INCREASED [None]
  - WEIGHT INCREASED [None]
